FAERS Safety Report 20133704 (Version 2)
Quarter: 2021Q4

REPORT INFORMATION
  Report Type: Report from Study
  Country: US (occurrence: US)
  Receive Date: 20211201
  Receipt Date: 20211210
  Transmission Date: 20220303
  Serious: Yes (Death, Hospitalization, Other)
  Sender: FDA-Public Use
  Company Number: US-ACADIA PHARMACEUTICALS INC.-ACA-2021-PIM-004009

PATIENT
  Age: 60 Year
  Sex: Female

DRUGS (3)
  1. NUPLAZID [Suspect]
     Active Substance: PIMAVANSERIN TARTRATE
     Indication: Parkinson^s disease
     Dosage: 10 MILLIGRAM, QD
     Route: 048
     Dates: start: 20211004
  2. NUPLAZID [Suspect]
     Active Substance: PIMAVANSERIN TARTRATE
     Dosage: 10 MILLIGRAM, QD
     Route: 048
     Dates: start: 20211013
  3. RIVASTIGMINE [Concomitant]
     Active Substance: RIVASTIGMINE
     Dosage: UNK
     Dates: start: 20211004

REACTIONS (8)
  - Dementia with Lewy bodies [Fatal]
  - Acute kidney injury [Fatal]
  - Cardio-respiratory arrest [Fatal]
  - Ascites [Unknown]
  - Non-alcoholic steatohepatitis [Not Recovered/Not Resolved]
  - Hepatic cirrhosis [Recovered/Resolved]
  - Electrocardiogram QT prolonged [Unknown]
  - Underdose [Not Recovered/Not Resolved]

NARRATIVE: CASE EVENT DATE: 20211004
